FAERS Safety Report 19924384 (Version 1)
Quarter: 2021Q4

REPORT INFORMATION
  Report Type: Spontaneous
  Country: RU (occurrence: RU)
  Receive Date: 20211006
  Receipt Date: 20211006
  Transmission Date: 20220303
  Serious: Yes (Hospitalization)
  Sender: FDA-Public Use
  Company Number: RU-BAYER-2021A218795

PATIENT
  Age: 30 Year
  Sex: Female
  Weight: 87.5 kg

DRUGS (1)
  1. DROSPIRENONE\ETHINYL ESTRADIOL [Suspect]
     Active Substance: DROSPIRENONE\ETHINYL ESTRADIOL
     Indication: Contraception
     Dosage: 1 DF, QD
     Route: 048
     Dates: start: 20190215, end: 201905

REACTIONS (6)
  - Pulmonary embolism [None]
  - Pulmonary infarction [None]
  - Pneumonia [None]
  - Abdominal pain [None]
  - Chest pain [None]
  - Gastritis [None]

NARRATIVE: CASE EVENT DATE: 20190501
